FAERS Safety Report 10235468 (Version 3)
Quarter: 2017Q2

REPORT INFORMATION
  Report Type: Spontaneous
  Country: US (occurrence: US)
  Receive Date: 20140613
  Receipt Date: 20170418
  Transmission Date: 20170829
  Serious: Yes (Life-Threatening, Hospitalization)
  Sender: FDA-Public Use
  Company Number: US-BAYER-2014-088552

PATIENT

DRUGS (2)
  1. ALKA-SELTZER PLUS COLD AND COUGH [Suspect]
     Active Substance: ACETAMINOPHEN\CHLORPHENIRAMINE\DEXTROMETHORPHAN\PHENYLEPHRINE
     Indication: HYPERSENSITIVITY
     Dosage: UNK
     Dates: start: 20130117
  2. ALKA-SELTZER PLUS COLD AND COUGH [Suspect]
     Active Substance: ACETAMINOPHEN\CHLORPHENIRAMINE\DEXTROMETHORPHAN\PHENYLEPHRINE
     Indication: VIRAL UPPER RESPIRATORY TRACT INFECTION
     Dosage: UNK
     Route: 048
     Dates: start: 20130116

REACTIONS (12)
  - Emotional distress [None]
  - Anxiety [None]
  - Toxic epidermal necrolysis [Unknown]
  - Coma [Unknown]
  - Intentional product misuse [None]
  - Skin exfoliation [Unknown]
  - Deformity [Unknown]
  - Loss of consciousness [Unknown]
  - Pain [Unknown]
  - Injury [Unknown]
  - Oral mucosal blistering [Unknown]
  - Malaise [Unknown]

NARRATIVE: CASE EVENT DATE: 20130116
